FAERS Safety Report 11193267 (Version 1)
Quarter: 2015Q2

REPORT INFORMATION
  Report Type: Spontaneous
  Country: IN (occurrence: IN)
  Receive Date: 20150616
  Receipt Date: 20150616
  Transmission Date: 20150821
  Serious: Yes (Other)
  Sender: FDA-Public Use
  Company Number: IN-GILEAD-2015-0158265

PATIENT
  Age: 31 Year
  Sex: Female

DRUGS (11)
  1. CALCIUM CARBONATE. [Concomitant]
     Active Substance: CALCIUM CARBONATE
  2. HEPSERA [Suspect]
     Active Substance: ADEFOVIR DIPIVOXIL
     Indication: HEPATITIS B
     Dosage: 10 MG, QD
     Route: 065
     Dates: start: 200808
  3. LAMIVUDINE. [Concomitant]
     Active Substance: LAMIVUDINE
     Dosage: 100 MG, QD
     Route: 065
  4. ATORVASTATIN [Concomitant]
     Active Substance: ATORVASTATIN
  5. LEFLUNOMIDE. [Concomitant]
     Active Substance: LEFLUNOMIDE
  6. CALCITRIOL. [Concomitant]
     Active Substance: CALCITRIOL
  7. TENOFOVIR DISOPROXIL FUMARATE [Concomitant]
     Active Substance: TENOFOVIR DISOPROXIL FUMARATE
     Indication: HEPATITIS B
  8. CYCLOSPORINE. [Concomitant]
     Active Substance: CYCLOSPORINE
  9. PREDNISOLONE. [Concomitant]
     Active Substance: PREDNISOLONE
  10. AZATHIOPRINE. [Concomitant]
     Active Substance: AZATHIOPRINE
  11. AMLODIPINE [Concomitant]
     Active Substance: AMLODIPINE BESYLATE

REACTIONS (4)
  - Nephropathy toxic [Unknown]
  - Proteinuria [Recovered/Resolved]
  - Blood creatine increased [Recovering/Resolving]
  - Renal tubular necrosis [Unknown]
